FAERS Safety Report 5195843-3 (Version None)
Quarter: 2006Q4

REPORT INFORMATION
  Report Type: 
  Country: None (occurrence: None)
  Receive Date: 20061227
  Receipt Date: 20061218
  Transmission Date: 20070319
  Serious: Yes (Death)
  Sender: FDA-Public Use
  Company Number: 151085USA

PATIENT
  Sex: 0

DRUGS (2)
  1. MERCAPTOPURINE [Suspect]
     Indication: CROHN'S DISEASE
     Dosage: 100 MG (100 MG, 1 IN 1 D)
  2. AZATHIOPRINE [Suspect]
     Indication: CROHN'S DISEASE
     Dosage: 150 MG (150 MG, 1 IN 1 D)

REACTIONS (3)
  - BONE MARROW FAILURE [None]
  - DRUG PRESCRIBING ERROR [None]
  - SEPSIS [None]
